FAERS Safety Report 24151763 (Version 1)
Quarter: 2024Q3

REPORT INFORMATION
  Report Type: Report from Study
  Country: CA (occurrence: CA)
  Receive Date: 20240730
  Receipt Date: 20240730
  Transmission Date: 20241016
  Serious: Yes (Hospitalization, Other)
  Sender: REGENERON
  Company Number: CA-BAYER-2024A107808

PATIENT
  Sex: Male

DRUGS (2)
  1. EYLEA [Suspect]
     Active Substance: AFLIBERCEPT
     Indication: Diabetic retinal oedema
     Dosage: 40 MG/ML, SOLUTION FOR INJECTION
  2. EYLEA [Suspect]
     Active Substance: AFLIBERCEPT
     Dosage: 40MG/ML, SOLUTION FOR INJECTION
     Dates: start: 202405

REACTIONS (3)
  - Eye operation [Unknown]
  - Colon cancer [Unknown]
  - Eye swelling [Not Recovered/Not Resolved]

NARRATIVE: CASE EVENT DATE: 20240101
